FAERS Safety Report 8799307 (Version 1)
Quarter: 2012Q4

REPORT INFORMATION
  Report Type: 
  Country: US (occurrence: US)
  Receive Date: 20120919
  Receipt Date: 20120919
  Transmission Date: 20130627
  Serious: Yes (Life-Threatening, Other)
  Sender: FDA-Public Use
  Company Number: US-009507513-1209USA005883

PATIENT

DRUGS (2)
  1. SAPHRIS [Suspect]
     Dosage: 10 mg, evening
     Route: 060
  2. ABILIFY [Suspect]
     Dosage: 5 mg, evening

REACTIONS (9)
  - Swelling [Unknown]
  - Pain [Unknown]
  - Oedema peripheral [Unknown]
  - Erythema [Unknown]
  - Musculoskeletal stiffness [Unknown]
  - Constipation [Unknown]
  - Joint swelling [Unknown]
  - Burning sensation [Unknown]
  - Inappropriate schedule of drug administration [Unknown]
